FAERS Safety Report 26216698 (Version 1)
Quarter: 2025Q4

REPORT INFORMATION
  Report Type: Spontaneous
  Country: US (occurrence: US)
  Receive Date: 20251231
  Receipt Date: 20251231
  Transmission Date: 20260118
  Serious: No
  Sender: TOLMAR
  Company Number: US-Tolmar-TLM-2025-08653

PATIENT

DRUGS (3)
  1. ELIGARD [Suspect]
     Active Substance: LEUPROLIDE ACETATE
     Indication: Prostate cancer metastatic
     Dosage: NOT ADMINISTERED ?SN 6800242712924, GTIN 00362935227106, LOT: 15248RCUS AND EXP: JUL-2026?SYRINGE A:
  2. ELIGARD [Suspect]
     Active Substance: LEUPROLIDE ACETATE
  3. DEVICE [Suspect]
     Active Substance: DEVICE
     Indication: Prostate cancer metastatic
     Dosage: SN 6800242712924, GTIN 00362935227106, LOT: 15248RCUS AND EXP: JUL-2026?SYRINGE A: LOT: 15248AUS EXP

REACTIONS (2)
  - Wrong technique in product usage process [Unknown]
  - Product packaging quantity issue [Unknown]
